FAERS Safety Report 6195078-1 (Version None)
Quarter: 2009Q2

REPORT INFORMATION
  Report Type: 
  Country: None (occurrence: None)
  Receive Date: 20090514
  Receipt Date: 20090428
  Transmission Date: 20091009
  Serious: Yes (Other)
  Sender: FDA-Public Use
  Company Number: 2009BI009148

PATIENT
  Age: 67 Year
  Sex: Male

DRUGS (10)
  1. ZEVALIN [Suspect]
     Indication: B-CELL LYMPHOMA
     Dosage: 0.4 MCI/KG; 1X; IV
     Route: 042
  2. ZEVALIN [Suspect]
     Indication: BONE MARROW CONDITIONING REGIMEN
     Dosage: 0.4 MCI/KG; 1X; IV
     Route: 042
  3. ZEVALIN [Suspect]
     Indication: STEM CELL TRANSPLANT
     Dosage: 0.4 MCI/KG; 1X; IV
     Route: 042
  4. RITUXIMAB [Concomitant]
  5. CARMUSTINE [Concomitant]
  6. ETOPOSIDE [Concomitant]
  7. CYTARABINE [Concomitant]
  8. MELPHALAN [Concomitant]
  9. METHOTREXATE [Concomitant]
  10. REPAGLINIDE [Concomitant]

REACTIONS (2)
  - BLADDER CANCER [None]
  - NERVOUS SYSTEM DISORDER [None]
